FAERS Safety Report 4285956-2 (Version None)
Quarter: 2004Q1

REPORT INFORMATION
  Report Type: 
  Country: None (occurrence: None)
  Receive Date: 20040203
  Receipt Date: 20040122
  Transmission Date: 20041129
  Serious: Yes (Other)
  Sender: FDA-Public Use
  Company Number: 2004005100

PATIENT
  Sex: Male

DRUGS (14)
  1. NEURONTIN [Suspect]
     Indication: ILL-DEFINED DISORDER
     Dosage: UNKNOWN
  2. ACETYLSALICYLIC ACID SRT [Concomitant]
  3. DILTIAZEM HYDROCHLORIDE [Concomitant]
  4. FOLIC ACID [Concomitant]
  5. ATORVASTATIN CALCIUM [Concomitant]
  6. BUDESONIDE (BUDESONIDE) [Concomitant]
  7. SALBUTAMOL (SALBUTAMOL) [Concomitant]
  8. CETIRIZINE HCL [Concomitant]
  9. MOMETASONE FUROATE (MOMETASONE FUROATE) [Concomitant]
  10. CYCLOBENZAPRINE HYDROCHLORIDE [Concomitant]
  11. VICODIN [Concomitant]
  12. NORTRIPTYLINE HYDROCHLORIDE [Concomitant]
  13. METAXALONE [Concomitant]
  14. RANITIDINE HYDROCHLORIDE [Concomitant]

REACTIONS (2)
  - DIPLOPIA [None]
  - PARALYSIS [None]
